FAERS Safety Report 24571896 (Version 1)
Quarter: 2024Q4

REPORT INFORMATION
  Report Type: Spontaneous
  Country: US (occurrence: None)
  Receive Date: 20241031
  Receipt Date: 20241031
  Transmission Date: 20250115
  Serious: No
  Sender: Public
  Company Number: None

PATIENT
  Age: 77 Year
  Sex: Male

DRUGS (1)
  1. AMIODARONE HYDROCHLORIDE [Suspect]
     Active Substance: AMIODARONE HYDROCHLORIDE
     Indication: Pulmonary toxicity
     Dosage: 200.00 MG DAILY ORAL ?
     Route: 048

REACTIONS (1)
  - Hypersensitivity pneumonitis [None]

NARRATIVE: CASE EVENT DATE: 20240328
